FAERS Safety Report 7786999-4 (Version None)
Quarter: 2011Q3

REPORT INFORMATION
  Report Type: 
  Country: None (occurrence: None)
  Receive Date: 20110929
  Receipt Date: 20110718
  Transmission Date: 20111222
  Serious: Yes (Life-Threatening, Hospitalization, Other)
  Sender: FDA-Public Use
  Company Number: US-BAYER-2011-001512

PATIENT
  Age: 29 Year
  Sex: Female
  Weight: 144 kg

DRUGS (9)
  1. METOPROLOL TARTRATE [Concomitant]
     Route: 048
  2. SINGULAIR [Concomitant]
     Route: 048
  3. DROSPIRENONE AND ETHINYL ESTRADIOL [Suspect]
     Dosage: UNK
     Dates: start: 20070101, end: 20090101
  4. EFFEXOR [Concomitant]
     Route: 048
  5. AMBIEN CR [Concomitant]
     Dosage: 12.5 MG, UNK
  6. YASMIN [Suspect]
     Dosage: UNK
     Dates: start: 20070101, end: 20090101
  7. MECLIZINE [Concomitant]
     Dosage: 25 MG, UNK
  8. ALBUTEROL [Concomitant]
  9. METRONIDAZOLE [Concomitant]
     Dosage: 500 MG, UNK

REACTIONS (5)
  - PAIN [None]
  - EMOTIONAL DISTRESS [None]
  - PULMONARY EMBOLISM [None]
  - THROMBOSIS [None]
  - ANXIETY [None]
